FAERS Safety Report 21486492 (Version 2)
Quarter: 2022Q4

REPORT INFORMATION
  Report Type: Spontaneous
  Country: US (occurrence: US)
  Receive Date: 20221020
  Receipt Date: 20221108
  Transmission Date: 20230113
  Serious: Yes (Other)
  Sender: FDA-Public Use
  Company Number: US-TEVA-2022-US-2816633

PATIENT
  Age: 87 Year
  Sex: Male

DRUGS (7)
  1. CIPROFLOXACIN [Suspect]
     Active Substance: CIPROFLOXACIN
     Indication: Scleritis
     Dosage: 1000 MILLIGRAM DAILY;
     Route: 048
  2. CIPROFLOXACIN [Suspect]
     Active Substance: CIPROFLOXACIN
     Indication: Pseudomonas infection
  3. TOBRAMYCIN [Suspect]
     Active Substance: TOBRAMYCIN
     Indication: Pseudomonas infection
     Dosage: 15 MG/ML- EYE DROPS, HOURLY
     Route: 061
  4. MOXIFLOXACIN [Suspect]
     Active Substance: MOXIFLOXACIN
     Indication: Pseudomonas infection
     Dosage: HOURLY
     Route: 061
  5. CYCLOPENTOLATE [Suspect]
     Active Substance: CYCLOPENTOLATE
     Indication: Pseudomonas infection
     Dosage: TWICE A DAY
     Route: 061
  6. LOTEPREDNOL [Suspect]
     Active Substance: LOTEPREDNOL
     Indication: Pseudomonas infection
     Dosage: FOUR TIMES A DAY
     Route: 061
  7. TRIAMCINOLONE [Suspect]
     Active Substance: TRIAMCINOLONE
     Indication: Pseudomonas infection
     Dosage: 40 MG/ML IN 0.3 ML
     Route: 057

REACTIONS (3)
  - Necrotising scleritis [Recovered/Resolved]
  - Scleromalacia [Recovered/Resolved]
  - Toxicity to various agents [Recovered/Resolved]
